FAERS Safety Report 4345819-0 (Version None)
Quarter: 2004Q2

REPORT INFORMATION
  Report Type: 
  Country: None (occurrence: None)
  Receive Date: 20040424
  Receipt Date: 20030113
  Transmission Date: 20050107
  Serious: Yes (Other)
  Sender: FDA-Public Use
  Company Number: US-MERCK-0301USA01099

PATIENT
  Age: 46 Year
  Sex: Male
  Weight: 107 kg

DRUGS (3)
  1. CELEBREX [Concomitant]
     Route: 065
  2. VIOXX [Suspect]
     Indication: PAIN
     Route: 048
     Dates: start: 20020430, end: 20020624
  3. VIOXX [Suspect]
     Route: 048
     Dates: start: 20010801, end: 20020103

REACTIONS (3)
  - AMNESIA [None]
  - BLOOD CHOLESTEROL INCREASED [None]
  - ISCHAEMIC STROKE [None]
